FAERS Safety Report 26212476 (Version 1)
Quarter: 2025Q4

REPORT INFORMATION
  Report Type: Spontaneous
  Country: EU (occurrence: EU)
  Receive Date: 20251230
  Receipt Date: 20251230
  Transmission Date: 20260117
  Serious: Yes (Other)
  Sender: SANOFI AVENTIS
  Company Number: EU-DialogSolutions-SAAVPROD-PI858328-C1

PATIENT
  Age: 53 Year
  Sex: Female

DRUGS (4)
  1. LEFLUNOMIDE [Suspect]
     Active Substance: LEFLUNOMIDE
     Dosage: UNK
  2. METHOTREXATE [Suspect]
     Active Substance: METHOTREXATE
     Dosage: UNK
  3. RAMIPRIL [Concomitant]
     Active Substance: RAMIPRIL
     Dosage: 5 MG
  4. ROSUVASTATIN [Concomitant]
     Active Substance: ROSUVASTATIN

REACTIONS (10)
  - Dermatomyositis [Recovering/Resolving]
  - Rash [Recovering/Resolving]
  - Alopecia [Recovering/Resolving]
  - Skin lesion [Recovering/Resolving]
  - Rash erythematous [Recovering/Resolving]
  - Erythema [Recovering/Resolving]
  - Gottron^s papules [Recovering/Resolving]
  - Tenderness [Recovering/Resolving]
  - Myalgia [Recovering/Resolving]
  - Arthralgia [Recovering/Resolving]
